FAERS Safety Report 24759086 (Version 1)
Quarter: 2024Q4

REPORT INFORMATION
  Report Type: Report from Study
  Country: US (occurrence: US)
  Receive Date: 20241220
  Receipt Date: 20241220
  Transmission Date: 20250115
  Serious: Yes (Other)
  Sender: ABBVIE
  Company Number: US-ABBVIE-6052653

PATIENT
  Age: 27 Year
  Sex: Female

DRUGS (1)
  1. HUMIRA [Suspect]
     Active Substance: ADALIMUMAB
     Indication: Product used for unknown indication
     Dosage: CITRATE FREE
     Route: 058
     Dates: start: 20240804

REACTIONS (6)
  - Loss of consciousness [Unknown]
  - Fall [Unknown]
  - Concussion [Unknown]
  - Hypotension [Unknown]
  - Head injury [Unknown]
  - Face injury [Unknown]

NARRATIVE: CASE EVENT DATE: 20241201
